FAERS Safety Report 7089762-5 (Version None)
Quarter: 2010Q4

REPORT INFORMATION
  Report Type: 
  Country: None (occurrence: None)
  Receive Date: 20101108
  Receipt Date: 20101102
  Transmission Date: 20110411
  Serious: No
  Sender: FDA-Public Use
  Company Number: US-ABBOTT-10P-163-0682787-00

PATIENT
  Weight: 72.64 kg

DRUGS (11)
  1. TRICOR [Suspect]
     Indication: BLOOD CHOLESTEROL INCREASED
     Dates: start: 20101030
  2. TRICOR [Suspect]
  3. TOPROL-XL [Concomitant]
     Indication: BLOOD PRESSURE
  4. DILACOR XR [Concomitant]
     Indication: BLOOD PRESSURE
  5. DIOVAN [Concomitant]
     Indication: BLOOD PRESSURE
  6. CELEXA [Concomitant]
     Indication: DEPRESSION
  7. TEMAZEPAM [Concomitant]
     Indication: INSOMNIA
  8. PRILOSEC [Concomitant]
     Indication: GASTRIC DISORDER
  9. BENAFIBER [Concomitant]
     Indication: PRODUCT USED FOR UNKNOWN INDICATION
  10. PB8 PROBIOTICS [Concomitant]
     Indication: PRODUCT USED FOR UNKNOWN INDICATION
  11. VIT D [Concomitant]
     Indication: PRODUCT USED FOR UNKNOWN INDICATION

REACTIONS (1)
  - URINE ODOUR ABNORMAL [None]
